FAERS Safety Report 16317328 (Version 4)
Quarter: 2019Q3

REPORT INFORMATION
  Report Type: Report from Study
  Country: US (occurrence: US)
  Receive Date: 20190515
  Receipt Date: 20190806
  Transmission Date: 20191004
  Serious: Yes (Hospitalization, Other)
  Sender: FDA-Public Use
  Company Number: US-ROCHE-2310684

PATIENT
  Sex: Female

DRUGS (1)
  1. OCREVUS [Suspect]
     Active Substance: OCRELIZUMAB
     Indication: MULTIPLE SCLEROSIS
     Dosage: LAST DOSE: 08/NOV/2018
     Route: 042

REACTIONS (4)
  - Urinary tract infection [Unknown]
  - Skin disorder [Unknown]
  - Metabolic encephalopathy [Unknown]
  - Wound [Not Recovered/Not Resolved]
